FAERS Safety Report 10734701 (Version 8)
Quarter: 2016Q2

REPORT INFORMATION
  Report Type: Report from Study
  Country: US (occurrence: US)
  Receive Date: 20150123
  Receipt Date: 20160603
  Transmission Date: 20160815
  Serious: Yes (Other)
  Sender: FDA-Public Use
  Company Number: US-AMGEN INC.-2014-2282

PATIENT
  Age: 55 Year
  Sex: Female

DRUGS (13)
  1. KYPROLIS [Suspect]
     Active Substance: CARFILZOMIB
     Indication: AMYLOIDOSIS
     Dosage: 1 DAY A WEEK EVERY OTHER WEEK
     Route: 042
     Dates: start: 20140728
  2. TOPROL XL [Concomitant]
     Active Substance: METOPROLOL SUCCINATE
     Indication: CARDIAC DISORDER
     Dosage: UNK
     Route: 065
  3. ACYCLOVIR                          /00587301/ [Concomitant]
     Active Substance: ACYCLOVIR
     Indication: ANTIVIRAL PROPHYLAXIS
     Dosage: UNK
     Route: 065
  4. KYPROLIS [Suspect]
     Active Substance: CARFILZOMIB
     Dosage: 1 DAY A WEEK EVERY OTHER WEEK
     Route: 042
  5. DEXAMETHASONE. [Concomitant]
     Active Substance: DEXAMETHASONE
     Indication: AMYLOIDOSIS
     Dosage: UNK
     Route: 065
  6. KYPROLIS [Suspect]
     Active Substance: CARFILZOMIB
     Indication: PLASMA CELL MYELOMA
     Dosage: 49 MG, TWO DAYS A WEEK EVERY OTHER WEEK
     Route: 042
  7. KYPROLIS [Suspect]
     Active Substance: CARFILZOMIB
     Dosage: 27 MG/M2, ONCE EVERY OTHER WEEK
     Route: 065
     Dates: start: 201505
  8. GABAPENTIN. [Concomitant]
     Active Substance: GABAPENTIN
     Indication: NEUROPATHY PERIPHERAL
     Dosage: UNK
     Route: 065
  9. CALTRATE D                         /00944201/ [Concomitant]
     Indication: OSTEOPENIA
     Route: 065
  10. KYPROLIS [Suspect]
     Active Substance: CARFILZOMIB
     Dosage: 27 MG/M2, UNK
     Route: 065
     Dates: start: 201407, end: 20160502
  11. KYPROLIS [Suspect]
     Active Substance: CARFILZOMIB
     Dosage: 2 DAYS EVERY OTHER WEEK
     Route: 065
  12. FUROSEMIDE. [Concomitant]
     Active Substance: FUROSEMIDE
     Dosage: 10 MG, QD
  13. METOPROLOL. [Concomitant]
     Active Substance: METOPROLOL
     Indication: CARDIOVASCULAR EVENT PROPHYLAXIS

REACTIONS (23)
  - Fluid retention [Not Recovered/Not Resolved]
  - Laboratory test abnormal [Unknown]
  - Weight increased [Unknown]
  - Glomerular filtration rate decreased [Unknown]
  - Haematochezia [Unknown]
  - Blood creatinine increased [Unknown]
  - General physical health deterioration [Unknown]
  - Nasal congestion [Unknown]
  - Blood glucose decreased [Unknown]
  - Nasopharyngitis [Unknown]
  - Cough [Unknown]
  - Insomnia [Unknown]
  - Fatigue [Unknown]
  - Blood cholesterol increased [Not Recovered/Not Resolved]
  - Neuropathy peripheral [Not Recovered/Not Resolved]
  - Protein total abnormal [Unknown]
  - Light chain analysis increased [Recovering/Resolving]
  - Myalgia [Recovered/Resolved]
  - Abdominal distension [Not Recovered/Not Resolved]
  - Malaise [Unknown]
  - Osteopenia [Not Recovered/Not Resolved]
  - Dyspnoea [Unknown]
  - Off label use [Unknown]

NARRATIVE: CASE EVENT DATE: 201407
